FAERS Safety Report 21523341 (Version 1)
Quarter: 2022Q4

REPORT INFORMATION
  Report Type: Spontaneous
  Country: US (occurrence: US)
  Receive Date: 20221029
  Receipt Date: 20221029
  Transmission Date: 20230112
  Serious: No
  Sender: FDA-Public Use
  Company Number: US-BRISTOL-MYERS SQUIBB COMPANY-2022-128759

PATIENT
  Age: 63 Year
  Sex: Male
  Weight: 112.0 kg

DRUGS (1)
  1. REVLIMID [Suspect]
     Active Substance: LENALIDOMIDE
     Indication: Plasma cell myeloma
     Dosage: FREQUENCY:D1-21 Q28 DAYS?ONGOING
     Route: 048
     Dates: start: 20220909

REACTIONS (1)
  - Rash [Recovered/Resolved]
